FAERS Safety Report 8310198-0 (Version None)
Quarter: 2012Q2

REPORT INFORMATION
  Report Type: 
  Country: None (occurrence: None)
  Receive Date: 20120425
  Receipt Date: 20120417
  Transmission Date: 20120825
  Serious: Yes (Hospitalization, Other)
  Sender: FDA-Public Use
  Company Number: US-BAYER-2012-003405

PATIENT
  Age: 42 Year
  Sex: Female
  Weight: 72.562 kg

DRUGS (8)
  1. CALCIUM [Concomitant]
     Dosage: 600 MG, QD
     Dates: start: 20110719
  2. ANALGESICS [Concomitant]
     Indication: HEADACHE
     Dosage: AS NEEDED 2 X WEEK
  3. YASMIN [Suspect]
     Dosage: UNK
     Route: 048
     Dates: start: 20050201, end: 20090101
  4. SUPER B COMPLEX [Concomitant]
     Indication: ASTHENIA
     Dosage: 1 DAILY
     Dates: start: 20110719
  5. FISH OIL [Concomitant]
     Dosage: 1000 MG, QD
     Dates: start: 20110719
  6. ZOVIA 1/35E-21 [Concomitant]
     Indication: CONTRACEPTION
     Dosage: 1-35 DAILY
     Dates: start: 20110706
  7. RIBOFLAVIN [Concomitant]
     Indication: MIGRAINE
     Dosage: 100 MG, QD
     Dates: start: 20110719
  8. ASCORBIC ACID [Concomitant]
     Dosage: 500 MG, QD
     Dates: start: 20110719

REACTIONS (13)
  - PANCREATIC DISORDER [None]
  - RENAL FAILURE [None]
  - RENAL IMPAIRMENT [None]
  - FEAR [None]
  - CHOLECYSTITIS ACUTE [None]
  - INJURY [None]
  - ANXIETY [None]
  - BILE DUCT OBSTRUCTION [None]
  - MYOCARDIAL INFARCTION [None]
  - HEPATIC FAILURE [None]
  - PSYCHOLOGICAL TRAUMA [None]
  - PAIN [None]
  - EMOTIONAL DISTRESS [None]
